FAERS Safety Report 4625219-6 (Version None)
Quarter: 2005Q2

REPORT INFORMATION
  Report Type: 
  Country: None (occurrence: None)
  Receive Date: 20050401
  Receipt Date: 20020516
  Transmission Date: 20051028
  Serious: Yes (Death, Hospitalization, Other)
  Sender: FDA-Public Use
  Company Number: US-MERCK-0205USA01985

PATIENT
  Age: 35 Year
  Sex: Male
  Weight: 205 kg

DRUGS (21)
  1. MOTRIN [Concomitant]
     Indication: ARTHRITIS
     Route: 065
  2. MYLANTA + MYLANTA DS [Concomitant]
     Indication: GASTRIC DISORDER
     Route: 065
  3. [THERAPY UNSPECIFIED] [Concomitant]
     Indication: DEPRESSION
     Route: 065
     Dates: end: 20011020
  4. CYTOTEC [Concomitant]
     Indication: GASTRIC DISORDER
     Route: 065
  5. CELEBREX [Concomitant]
     Route: 065
  6. NAPROXEN [Concomitant]
     Route: 065
  7. MERIDIA [Concomitant]
     Indication: OBESITY
     Route: 065
  8. XENICAL [Concomitant]
     Indication: OBESITY
     Route: 065
  9. VENTOLIN [Concomitant]
     Route: 065
  10. AZMACORT [Concomitant]
     Route: 065
  11. PEPCID [Concomitant]
     Route: 048
  12. VIOXX [Suspect]
     Indication: ARTHRITIS
     Route: 048
     Dates: end: 20011020
  13. VIOXX [Suspect]
     Route: 048
     Dates: start: 20010103
  14. TYLENOL (CAPLET) [Concomitant]
     Indication: PAIN
     Route: 065
  15. DYAZIDE [Concomitant]
     Indication: FLUID RETENTION
     Route: 065
     Dates: end: 20011020
  16. CATAPRES [Concomitant]
     Indication: HYPERTENSION
     Route: 065
     Dates: end: 20011020
  17. ZESTRIL [Concomitant]
     Indication: HYPERTENSION
     Route: 065
  18. ZESTRIL [Concomitant]
     Indication: CARDIOMEGALY
     Route: 065
  19. ACTIFED [Concomitant]
     Indication: HYPERSENSITIVITY
     Route: 065
  20. ORUDIS [Concomitant]
     Route: 065
  21. PROCARDIA [Concomitant]
     Indication: HYPERTENSION
     Route: 065
     Dates: end: 20011020

REACTIONS (10)
  - ABDOMINAL PAIN UPPER [None]
  - CHEST PAIN [None]
  - DEATH [None]
  - DEPRESSION [None]
  - DYSPNOEA [None]
  - EPIGASTRIC DISCOMFORT [None]
  - INJURY [None]
  - MYOCARDIAL INFARCTION [None]
  - STOMACH DISCOMFORT [None]
  - VOMITING [None]
